FAERS Safety Report 8098613-1 (Version None)
Quarter: 2012Q1

REPORT INFORMATION
  Report Type: 
  Country: None (occurrence: None)
  Receive Date: 20120129
  Receipt Date: 20111026
  Transmission Date: 20120608
  Serious: Yes (Hospitalization)
  Sender: FDA-Public Use
  Company Number: US-ABBOTT-11P-163-0867612-00

PATIENT
  Sex: Female

DRUGS (2)
  1. HUMIRA [Suspect]
     Indication: CROHN'S DISEASE
     Route: 058
     Dates: start: 20111006, end: 20111006
  2. HUMIRA [Suspect]
     Route: 058
     Dates: start: 20111021, end: 20111021

REACTIONS (1)
  - GASTROINTESTINAL VIRAL INFECTION [None]
